FAERS Safety Report 23162877 (Version 1)
Quarter: 2023Q4

REPORT INFORMATION
  Report Type: Spontaneous
  Country: US (occurrence: None)
  Receive Date: 20231109
  Receipt Date: 20231109
  Transmission Date: 20240110
  Serious: No
  Sender: FDA-Public Use
  Company Number: US-ROCHE-3340114

PATIENT
  Sex: Male

DRUGS (2)
  1. COTELLIC [Suspect]
     Active Substance: COBIMETINIB
     Indication: Langerhans^ cell histiocytosis
     Dosage: TAKE 1 TABLET BY MOUTH ONCE A DAY FOR 21 DAYS, THEN STOP FOR 7 DAYS; ONGOING: YES
     Route: 048
     Dates: start: 202208
  2. COTELLIC [Suspect]
     Active Substance: COBIMETINIB
     Indication: Haemorrhoids

REACTIONS (2)
  - Haemorrhage [Unknown]
  - Contusion [Unknown]
